FAERS Safety Report 7453356-X (Version None)
Quarter: 2011Q2

REPORT INFORMATION
  Report Type: 
  Country: None (occurrence: None)
  Receive Date: 20110502
  Receipt Date: 20110421
  Transmission Date: 20111010
  Serious: Yes (Other)
  Sender: FDA-Public Use
  Company Number: US-ASTRAZENECA-2011SE23064

PATIENT
  Age: 55 Year
  Sex: Male
  Weight: 99.8 kg

DRUGS (5)
  1. OXYCODONE [Concomitant]
     Indication: PROCEDURAL PAIN
     Dosage: PRN
     Route: 048
  2. DEPAKOTE [Concomitant]
     Indication: BIPOLAR DISORDER
     Dosage: DAILY
     Route: 048
  3. SEROQUEL [Suspect]
     Indication: BIPOLAR DISORDER
     Route: 048
  4. ZOLOFT [Concomitant]
     Indication: DEPRESSION
     Dosage: DAILY
     Route: 048
  5. FENTANYL [Concomitant]
     Indication: PROCEDURAL PAIN
     Dosage: PRN

REACTIONS (3)
  - ROTATOR CUFF REPAIR [None]
  - FEELING JITTERY [None]
  - RESTLESSNESS [None]
